FAERS Safety Report 7358555-3 (Version None)
Quarter: 2011Q1

REPORT INFORMATION
  Report Type: 
  Country: None (occurrence: None)
  Receive Date: 20110317
  Receipt Date: 20110309
  Transmission Date: 20110831
  Serious: Yes (Disabling, Other)
  Sender: FDA-Public Use
  Company Number: GR-AMGEN-QUU436554

PATIENT
  Age: 67 Year
  Sex: Female
  Weight: 75.6 kg

DRUGS (3)
  1. BROMAZEPAM [Concomitant]
  2. T4 [Concomitant]
  3. CINACALCET HYDROCHLORIDE [Suspect]
     Indication: HYPERPARATHYROIDISM PRIMARY
     Dosage: 30 MG, QD
     Route: 048
     Dates: start: 20100517, end: 20100816

REACTIONS (3)
  - URINE COLOUR ABNORMAL [None]
  - DERMATITIS [None]
  - ALOPECIA [None]
